FAERS Safety Report 4470889-9 (Version None)
Quarter: 2004Q4

REPORT INFORMATION
  Report Type: 
  Country: None (occurrence: None)
  Receive Date: 20041011
  Receipt Date: 20041001
  Transmission Date: 20050328
  Serious: Yes (Hospitalization)
  Sender: FDA-Public Use
  Company Number: US-AMGEN-US094248

PATIENT
  Sex: Female

DRUGS (8)
  1. PROCRIT [Suspect]
     Indication: ANAEMIA OF MALIGNANT DISEASE
     Route: 058
     Dates: start: 20020101
  2. DIGOXIN [Concomitant]
  3. VASOTEC [Concomitant]
  4. LOPRESSOR [Concomitant]
  5. WARFARIN SODIUM [Concomitant]
  6. ACTOS [Concomitant]
  7. FERROUS SULFATE TAB [Concomitant]
  8. GLUCOTROL [Concomitant]

REACTIONS (4)
  - ATRIAL FIBRILLATION [None]
  - DEPRESSED LEVEL OF CONSCIOUSNESS [None]
  - OEDEMA PERIPHERAL [None]
  - THERAPEUTIC RESPONSE DECREASED [None]
